FAERS Safety Report 9839534 (Version 2)
Quarter: 2014Q1

REPORT INFORMATION
  Report Type: Report from Study
  Country: US (occurrence: US)
  Receive Date: 20140124
  Receipt Date: 20140310
  Transmission Date: 20141002
  Serious: Yes (Other)
  Sender: FDA-Public Use
  Company Number: US-ROCHE-1335091

PATIENT
  Sex: Female
  Weight: 65.83 kg

DRUGS (7)
  1. XOLAIR [Suspect]
     Indication: ASTHMA
     Dosage: 3 VIALS, SHOT IN BOTH ARMS (2 IN 1, 1 IN 1)
     Route: 065
     Dates: start: 20140115
  2. XOLAIR [Suspect]
     Indication: BLOOD IMMUNOGLOBULIN E INCREASED
  3. OMEPRAZOLE [Concomitant]
     Route: 065
  4. SINGULAIR [Concomitant]
     Route: 065
  5. RANITIDINE [Concomitant]
     Route: 065
  6. THEOPHYLLINE [Concomitant]
     Indication: ASTHMA
  7. THEOPHYLLINE [Concomitant]
     Indication: GASTROOESOPHAGEAL REFLUX DISEASE

REACTIONS (10)
  - Cough [Recovered/Resolved]
  - Dyspnoea [Recovered/Resolved]
  - Malaise [Recovered/Resolved]
  - Asthma [Recovered/Resolved]
  - Chest discomfort [Recovered/Resolved]
  - Wheezing [Recovered/Resolved]
  - Dizziness [Recovered/Resolved]
  - Asthenia [Recovered/Resolved]
  - Syncope [Recovered/Resolved]
  - Loss of consciousness [Recovered/Resolved]
